FAERS Safety Report 20590763 (Version 1)
Quarter: 2022Q1

REPORT INFORMATION
  Report Type: Spontaneous
  Country: DK (occurrence: DK)
  Receive Date: 20220314
  Receipt Date: 20220314
  Transmission Date: 20220423
  Serious: Yes (Other)
  Sender: FDA-Public Use
  Company Number: DK-SAMSUNG-SB-2020-38492

PATIENT
  Age: 25 Year
  Sex: Male

DRUGS (14)
  1. TREMFYA [Suspect]
     Active Substance: GUSELKUMAB
     Indication: Hidradenitis
     Route: 058
     Dates: start: 201904
  2. TREMFYA [Suspect]
     Active Substance: GUSELKUMAB
     Indication: Crohn^s disease
     Route: 058
  3. TREMFYA [Suspect]
     Active Substance: GUSELKUMAB
     Route: 058
  4. ALCOHOL [Suspect]
     Active Substance: ALCOHOL
  5. AZATHIOPRINE [Suspect]
     Active Substance: AZATHIOPRINE
     Indication: Hidradenitis
     Route: 065
  6. RIFAMPIN [Suspect]
     Active Substance: RIFAMPIN
     Indication: Hidradenitis
     Route: 065
  7. CLINDAMYCIN [Suspect]
     Active Substance: CLINDAMYCIN
     Indication: Hidradenitis
     Route: 065
  8. METRONIDAZOLE [Suspect]
     Active Substance: METRONIDAZOLE
     Indication: Hidradenitis
     Route: 065
  9. PENICILLIN G [Suspect]
     Active Substance: PENICILLIN G
     Indication: Hidradenitis
     Route: 065
  10. ADALIMUMAB [Suspect]
     Active Substance: ADALIMUMAB
     Indication: Hidradenitis
     Route: 065
  11. DICLOXACILLIN [Suspect]
     Active Substance: DICLOXACILLIN
     Indication: Hidradenitis
     Route: 065
  12. TETRACYCLINE [Suspect]
     Active Substance: TETRACYCLINE
     Indication: Hidradenitis
     Route: 065
  13. DOXYCYCLINE [Suspect]
     Active Substance: DOXYCYCLINE
     Indication: Hidradenitis
     Route: 065
  14. CIPROFLOXACIN [Suspect]
     Active Substance: CIPROFLOXACIN
     Indication: Hidradenitis
     Route: 065

REACTIONS (6)
  - Hidradenitis [Recovering/Resolving]
  - Abdominal pain [Unknown]
  - Pyrexia [Unknown]
  - Drug ineffective [Unknown]
  - Off label use [Unknown]
  - Product use in unapproved indication [Unknown]

NARRATIVE: CASE EVENT DATE: 20190401
